FAERS Safety Report 4697964-8 (Version None)
Quarter: 2005Q2

REPORT INFORMATION
  Report Type: 
  Country: None (occurrence: None)
  Receive Date: 20050621
  Receipt Date: 20050607
  Transmission Date: 20051028
  Serious: No
  Sender: FDA-Public Use
  Company Number: 2005S1004693

PATIENT
  Age: 72 Year
  Sex: Male

DRUGS (3)
  1. APOKYN [Suspect]
     Indication: PARKINSON'S DISEASE
     Dates: start: 20050506
  2. CARBIDOPA AND LEVODOPA [Concomitant]
  3. ENTACAPONE [Concomitant]

REACTIONS (3)
  - MUSCLE RIGIDITY [None]
  - MYOCARDIAL INFARCTION [None]
  - TREMOR [None]
